FAERS Safety Report 11155798 (Version 1)
Quarter: 2015Q2

REPORT INFORMATION
  Report Type: Spontaneous
  Country: SE (occurrence: SE)
  Receive Date: 20150602
  Receipt Date: 20150602
  Transmission Date: 20150821
  Serious: Yes (Other)
  Sender: FDA-Public Use
  Company Number: SE-B.I. PHARMACEUTICALS,INC./RIDGEFIELD-2015-BI-28441SW

PATIENT
  Age: 82 Year
  Sex: Female

DRUGS (1)
  1. COMBIVENT [Suspect]
     Active Substance: ALBUTEROL SULFATE\IPRATROPIUM BROMIDE
     Indication: PRODUCT USED FOR UNKNOWN INDICATION
     Route: 065
     Dates: end: 20120311

REACTIONS (1)
  - Blindness [Unknown]

NARRATIVE: CASE EVENT DATE: 20120316
